FAERS Safety Report 23466413 (Version 2)
Quarter: 2024Q2

REPORT INFORMATION
  Report Type: Report from Study
  Country: FR (occurrence: FR)
  Receive Date: 20240201
  Receipt Date: 20240523
  Transmission Date: 20240716
  Serious: Yes (Other)
  Sender: FDA-Public Use
  Company Number: FR-ABBVIE-5610375

PATIENT
  Age: 73 Year
  Sex: Male
  Weight: 76 kg

DRUGS (8)
  1. UPADACITINIB [Suspect]
     Active Substance: UPADACITINIB
     Indication: Rheumatoid arthritis
     Dosage: 15 MILLIGRAM
     Route: 048
     Dates: start: 20220918, end: 20231121
  2. UPADACITINIB [Suspect]
     Active Substance: UPADACITINIB
     Indication: Rheumatoid arthritis
     Dosage: 15 MILLIGRAM
     Route: 048
     Dates: start: 20211014, end: 20220908
  3. SARS-CoV-2 vaccine [Concomitant]
     Indication: Prophylaxis
     Dates: start: 202210, end: 202210
  4. SARS-CoV-2 vaccine [Concomitant]
     Indication: Prophylaxis
     Dates: start: 20211202, end: 20211202
  5. FOLIC ACID [Concomitant]
     Active Substance: FOLIC ACID
     Indication: Prophylaxis
     Route: 048
     Dates: start: 2009
  6. IXPRIM [Concomitant]
     Active Substance: ACETAMINOPHEN\TRAMADOL HYDROCHLORIDE
     Indication: Rheumatoid arthritis
     Dosage: TIME INTERVAL: AS NECESSARY
     Route: 048
     Dates: start: 20191004
  7. METHOTREXATE [Concomitant]
     Active Substance: METHOTREXATE
     Indication: Rheumatoid arthritis
     Route: 058
     Dates: start: 2009, end: 20230119
  8. CHOLECALCIFEROL [Concomitant]
     Active Substance: CHOLECALCIFEROL
     Indication: Prophylaxis
     Route: 048
     Dates: start: 20191105

REACTIONS (1)
  - Prostatic adenoma [Not Recovered/Not Resolved]

NARRATIVE: CASE EVENT DATE: 20231019
